FAERS Safety Report 11835695 (Version 3)
Quarter: 2016Q1

REPORT INFORMATION
  Report Type: Spontaneous
  Country: US (occurrence: US)
  Receive Date: 20151215
  Receipt Date: 20160303
  Transmission Date: 20160525
  Serious: Yes (Hospitalization)
  Sender: FDA-Public Use
  Company Number: US-BAYER-2015-487759

PATIENT
  Age: 31 Year
  Sex: Female
  Weight: 68.27 kg

DRUGS (14)
  1. TYLENOL WITH CODEINE [Concomitant]
     Active Substance: ACETAMINOPHEN\CODEINE PHOSPHATE
     Indication: PAIN
     Dosage: 300MG-30MG,
     Route: 048
  2. VITAMIN D [Concomitant]
     Active Substance: CHOLECALCIFEROL
  3. PRENATAL VITAMINS [Concomitant]
     Active Substance: VITAMINS
  4. GENTAMICIN. [Concomitant]
     Active Substance: GENTAMICIN
  5. DICLOXACILLIN SODIUM. [Concomitant]
     Active Substance: DICLOXACILLIN SODIUM
     Dosage: 500 MG, UNK
     Route: 048
  6. OMEGA-3 ACIDS [Concomitant]
     Active Substance: OMEGA-3 FATTY ACIDS
     Dosage: 350MG-400MG
     Route: 048
  7. CAFFEINE. [Concomitant]
     Active Substance: CAFFEINE
  8. MIRENA [Suspect]
     Active Substance: LEVONORGESTREL
     Indication: CONTRACEPTION
     Dosage: 20 MCG/24HR, CONT
     Route: 015
     Dates: start: 20090810, end: 20110609
  9. PRENATAL S [Concomitant]
     Dosage: 10 MG, UNK
     Route: 048
  10. KRILL OIL [Concomitant]
     Active Substance: DIETARY SUPPLEMENT
  11. CLINDAMYCIN [Concomitant]
     Active Substance: CLINDAMYCIN\CLINDAMYCIN PHOSPHATE
  12. IRON [Concomitant]
     Active Substance: IRON
     Dosage: 400 ?G, UNK
     Route: 048
  13. MIRENA [Suspect]
     Active Substance: LEVONORGESTREL
     Indication: CONTRACEPTION
     Dosage: 20 MCG/24HR, CONT
     Route: 015
     Dates: start: 20121026, end: 20130424
  14. ROCEPHIN [Concomitant]
     Active Substance: CEFTRIAXONE SODIUM

REACTIONS (10)
  - Insomnia [None]
  - Pelvic inflammatory disease [None]
  - Pelvic infection [None]
  - Embedded device [Not Recovered/Not Resolved]
  - Vaginal haemorrhage [None]
  - Clostridium difficile infection [None]
  - Dyspareunia [None]
  - Abdominal pain lower [Not Recovered/Not Resolved]
  - Anxiety [None]
  - Weight decreased [None]

NARRATIVE: CASE EVENT DATE: 201210
